FAERS Safety Report 10691898 (Version 2)
Quarter: 2015Q1

REPORT INFORMATION
  Report Type: Spontaneous
  Country: US (occurrence: US)
  Receive Date: 20150105
  Receipt Date: 20150108
  Transmission Date: 20150720
  Serious: Yes (Hospitalization)
  Sender: FDA-Public Use
  Company Number: US-PERRIGO-14US012571

PATIENT
  Age: 15 Year
  Sex: Female
  Weight: 61.22 kg

DRUGS (2)
  1. PHENOL 1.4% CHERRY 328 [Suspect]
     Active Substance: PHENOL
     Indication: DRUG ABUSE
     Dosage: 3 OZ, UNK
     Route: 048
     Dates: start: 20141220, end: 20141220
  2. LORAZEPAM. [Suspect]
     Active Substance: LORAZEPAM
     Indication: DRUG ABUSE
     Dosage: 10-12 MG, UNK
     Route: 048
     Dates: start: 20141220, end: 20141220

REACTIONS (5)
  - Intentional overdose [Recovered/Resolved]
  - Somnolence [Unknown]
  - Incorrect route of drug administration [Recovered/Resolved]
  - Mydriasis [Recovering/Resolving]
  - Vomiting [Recovered/Resolved]

NARRATIVE: CASE EVENT DATE: 20141220
